FAERS Safety Report 6228851-1 (Version None)
Quarter: 2009Q2

REPORT INFORMATION
  Report Type: 
  Country: None (occurrence: None)
  Receive Date: 20090615
  Receipt Date: 20071109
  Transmission Date: 20091009
  Serious: Yes (Other)
  Sender: FDA-Public Use
  Company Number: US-ASTRAZENECA-2006UW23877

PATIENT
  Age: 14873 Day
  Sex: Male
  Weight: 91.6 kg

DRUGS (1)
  1. SEROQUEL [Suspect]
     Dosage: 25 - 300 MG
     Route: 048
     Dates: start: 20040420

REACTIONS (2)
  - DIABETES MELLITUS [None]
  - DIABETIC NEUROPATHY [None]
